FAERS Safety Report 5915594-4 (Version None)
Quarter: 2008Q4

REPORT INFORMATION
  Report Type: 
  Country: None (occurrence: None)
  Receive Date: 20081010
  Receipt Date: 20080911
  Transmission Date: 20090506
  Serious: No
  Sender: FDA-Public Use
  Company Number: A0747075A

PATIENT
  Age: 49 Year
  Sex: Female

DRUGS (14)
  1. TYKERB [Suspect]
     Indication: BREAST CANCER
     Dosage: 1000MG PER DAY
     Route: 048
     Dates: start: 20080601
  2. XELODA [Suspect]
     Dosage: 500MG VARIABLE DOSE
     Route: 048
     Dates: start: 20080601
  3. LIPITOR [Concomitant]
  4. FAMOTIDINE [Concomitant]
  5. PREVACID [Concomitant]
  6. ATENOLOL [Concomitant]
  7. SERTRALINE [Concomitant]
  8. DETROL [Concomitant]
  9. TRAMADOL HCL [Concomitant]
  10. ASPIRIN [Concomitant]
  11. PROCHLORPERAZINE [Concomitant]
  12. VITAMIN B [Concomitant]
  13. KLOR-CON [Concomitant]
  14. PULMICORT-100 [Concomitant]

REACTIONS (9)
  - BLISTER [None]
  - DIARRHOEA [None]
  - ERYTHEMA [None]
  - LOCALISED INFECTION [None]
  - OEDEMA PERIPHERAL [None]
  - PAIN IN EXTREMITY [None]
  - PARAESTHESIA [None]
  - PURULENT DISCHARGE [None]
  - SKIN ULCER [None]
